FAERS Safety Report 20991370 (Version 3)
Quarter: 2024Q1

REPORT INFORMATION
  Report Type: Spontaneous
  Country: FR (occurrence: FR)
  Receive Date: 20220622
  Receipt Date: 20240318
  Transmission Date: 20240409
  Serious: Yes (Hospitalization, Other)
  Sender: FDA-Public Use
  Company Number: None

PATIENT
  Age: 57 Year
  Sex: Male
  Weight: 93 kg

DRUGS (11)
  1. DULOXETINE HYDROCHLORIDE [Suspect]
     Active Substance: DULOXETINE HYDROCHLORIDE
     Indication: Product used for unknown indication
     Dosage: 90 MG, OTHER (60 MG IN MORNING, 30 MG IN EVENING)
     Route: 048
  2. FENOFIBRATE [Suspect]
     Active Substance: FENOFIBRATE
     Indication: Hyperlipidaemia
     Dosage: UNK, UNKNOWN
     Route: 048
     Dates: end: 202205
  3. PREDNISONE [Concomitant]
     Active Substance: PREDNISONE
     Indication: Product used for unknown indication
     Dosage: 80 MG
     Route: 048
     Dates: start: 20220414
  4. PREDNISONE [Concomitant]
     Active Substance: PREDNISONE
     Dosage: 50 MG, UNKNOWN
     Route: 048
     Dates: start: 20220514
  5. LAMOTRIGINE [Concomitant]
     Active Substance: LAMOTRIGINE
     Indication: Product used for unknown indication
     Dosage: 125 MG, BID
     Route: 048
  6. SYMBICORT [Concomitant]
     Active Substance: BUDESONIDE\FORMOTEROL FUMARATE DIHYDRATE
     Indication: Product used for unknown indication
     Dosage: 5 DOSAGE FORM, BID
     Route: 048
  7. BACTRIM [Concomitant]
     Active Substance: SULFAMETHOXAZOLE\TRIMETHOPRIM
     Indication: Product used for unknown indication
     Dosage: 1 DOSAGE FORM, QOD (80 MG 1 TAB ON MONDAY, WEDNESDAY AND FRIDAY)
     Route: 048
  8. SPIRIVA RESPIMAT [Concomitant]
     Active Substance: TIOTROPIUM BROMIDE
     Indication: Product used for unknown indication
     Dosage: 2 DOSAGE FORM, EACH MORNING (2 PUFFS)
     Route: 048
  9. AZATHIOPRINE [Concomitant]
     Active Substance: AZATHIOPRINE
     Indication: Eosinophilic granulomatosis with polyangiitis
     Dosage: 150 MG, DAILY (BACKGROUND TREATMENT (DOSE UNEXPECTEDLY LOWERED TO 50 MG/D IN JAN2022)
     Route: 048
  10. AZATHIOPRINE [Concomitant]
     Active Substance: AZATHIOPRINE
     Dosage: 150 MG, DAILY (BACKGROUND TREATMENT (DOSE UNEXPECTEDLY LOWERED TO 50 MG/D IN JAN2022)
     Route: 048
     Dates: start: 202201
  11. OLANZAPINE [Concomitant]
     Active Substance: OLANZAPINE
     Indication: Product used for unknown indication
     Dosage: 20 MG, EACH EVENING
     Route: 048

REACTIONS (1)
  - Interstitial lung disease [Recovered/Resolved with Sequelae]

NARRATIVE: CASE EVENT DATE: 20200101
